FAERS Safety Report 17518879 (Version 2)
Quarter: 2020Q2

REPORT INFORMATION
  Report Type: Report from Study
  Country: HR (occurrence: HR)
  Receive Date: 20200310
  Receipt Date: 20200410
  Transmission Date: 20200713
  Serious: Yes (Hospitalization)
  Sender: FDA-Public Use
  Company Number: HR-ROCHE-2561584

PATIENT
  Age: 26 Year
  Sex: Female
  Weight: 58 kg

DRUGS (7)
  1. CHLOROPYRAMINE [Concomitant]
     Active Substance: CHLOROPYRAMINE
     Indication: PREMEDICATION
     Dosage: NEXT DOSE ON 20/FEB/2019, 17/JUL/2019 AND 03/JAN/2020
     Route: 030
     Dates: start: 20190206
  2. OCRELIZUMAB. [Suspect]
     Active Substance: OCRELIZUMAB
     Indication: RELAPSING-REMITTING MULTIPLE SCLEROSIS
     Dosage: NEXT DOSE ON 20/FEB/2019, 17/JUL/2019 AND 03/JAN/2020
     Route: 042
     Dates: start: 20190206
  3. METHYLPREDNISOLONE. [Suspect]
     Active Substance: METHYLPREDNISOLONE
     Indication: PREMEDICATION
     Dosage: NEXT DOSE ON 20/FEB/2019, 17/JUL/2019 AND 03/JAN/2020
     Route: 042
     Dates: start: 20190206
  4. LINDYNETTE [Concomitant]
     Active Substance: ETHINYL ESTRADIOL\GESTODENE
     Indication: ORAL CONTRACEPTION
     Route: 048
  5. LINEX FORTE [Concomitant]
     Active Substance: PROBIOTICS NOS
     Route: 048
     Dates: start: 20200207, end: 20200222
  6. PARACETAMOL [Concomitant]
     Active Substance: ACETAMINOPHEN
     Indication: PREMEDICATION
     Dosage: NEXT DOSE ON 20/FEB/2019, 17/JUL/2019 AND 03/JAN/2020
     Route: 048
     Dates: start: 20190206
  7. VITAMIN D3 [Concomitant]
     Active Substance: CHOLECALCIFEROL
     Route: 048
     Dates: start: 20180320

REACTIONS (1)
  - Urinary tract infection [Recovered/Resolved]

NARRATIVE: CASE EVENT DATE: 20200130
